FAERS Safety Report 5065364-7 (Version None)
Quarter: 2006Q3

REPORT INFORMATION
  Report Type: 
  Country: None (occurrence: None)
  Receive Date: 20060707
  Receipt Date: 20060414
  Transmission Date: 20061208
  Serious: Yes (Hospitalization)
  Sender: FDA-Public Use
  Company Number: SUS1-2006-00331

PATIENT
  Age: 44 Year
  Sex: Male

DRUGS (9)
  1. PENTASA [Suspect]
     Indication: COLITIS ULCERATIVE
     Dosage: 1 G DAILY, RECTAL
     Route: 054
     Dates: start: 20060117, end: 20060219
  2. SALAZOPYRIN(SULFASALAZINE) [Suspect]
     Indication: COLITIS ULCERATIVE
     Dosage: SEE IMAGE
     Route: 048
     Dates: start: 20050310, end: 20050423
  3. SALAZOPYRIN(SULFASALAZINE) [Suspect]
     Indication: COLITIS ULCERATIVE
     Dosage: SEE IMAGE
     Route: 048
     Dates: start: 20050917, end: 20060103
  4. SALAZOPYRIN(SULFASALAZINE) [Suspect]
     Indication: COLITIS ULCERATIVE
     Dosage: SEE IMAGE
     Route: 048
     Dates: start: 20060104, end: 20060131
  5. SALAZOPYRIN(SULFASALAZINE) [Suspect]
     Indication: COLITIS ULCERATIVE
     Dosage: SEE IMAGE
     Route: 048
     Dates: start: 20060201, end: 20060202
  6. SALAZOPYRIN(SULFASALAZINE) [Suspect]
     Indication: COLITIS ULCERATIVE
     Dosage: SEE IMAGE
     Route: 048
     Dates: start: 20060203, end: 20060205
  7. SALAZOPYRIN(SULFASALAZINE) [Suspect]
     Indication: COLITIS ULCERATIVE
     Dosage: SEE IMAGE
     Route: 048
     Dates: start: 20060206, end: 20060214
  8. SALAZOPYRIN(SULFASALAZINE) [Suspect]
     Indication: COLITIS ULCERATIVE
     Dosage: SEE IMAGE
     Route: 048
     Dates: start: 20060610
  9. PREDNISOLONE [Concomitant]

REACTIONS (1)
  - PANCREATITIS ACUTE [None]
